FAERS Safety Report 21264731 (Version 2)
Quarter: 2022Q3

REPORT INFORMATION
  Report Type: Report from Study
  Country: ES (occurrence: ES)
  Receive Date: 20220829
  Receipt Date: 20220909
  Transmission Date: 20221027
  Serious: Yes (Hospitalization, Other)
  Sender: FDA-Public Use
  Company Number: ES-TAKEDA-2022TUS059189

PATIENT
  Age: 3 Year
  Sex: Male

DRUGS (20)
  1. TEDUGLUTIDE [Suspect]
     Active Substance: TEDUGLUTIDE
     Indication: Short-bowel syndrome
     Dosage: 0.320 MILLIGRAM, QD
     Route: 042
     Dates: start: 20200513, end: 20210717
  2. TEDUGLUTIDE [Suspect]
     Active Substance: TEDUGLUTIDE
     Indication: Short-bowel syndrome
     Dosage: 0.320 MILLIGRAM, QD
     Route: 042
     Dates: start: 20200513, end: 20210717
  3. TEDUGLUTIDE [Suspect]
     Active Substance: TEDUGLUTIDE
     Indication: Short-bowel syndrome
     Dosage: 0.320 MILLIGRAM, QD
     Route: 042
     Dates: start: 20200513, end: 20210717
  4. TEDUGLUTIDE [Suspect]
     Active Substance: TEDUGLUTIDE
     Indication: Short-bowel syndrome
     Dosage: 0.320 MILLIGRAM, QD
     Route: 042
     Dates: start: 20200513, end: 20210717
  5. TEDUGLUTIDE [Suspect]
     Active Substance: TEDUGLUTIDE
     Dosage: 0.320 MILLIGRAM, QD
     Route: 042
     Dates: start: 20210721
  6. TEDUGLUTIDE [Suspect]
     Active Substance: TEDUGLUTIDE
     Dosage: 0.320 MILLIGRAM, QD
     Route: 042
     Dates: start: 20210721
  7. TEDUGLUTIDE [Suspect]
     Active Substance: TEDUGLUTIDE
     Dosage: 0.320 MILLIGRAM, QD
     Route: 042
     Dates: start: 20210721
  8. TEDUGLUTIDE [Suspect]
     Active Substance: TEDUGLUTIDE
     Dosage: 0.320 MILLIGRAM, QD
     Route: 042
     Dates: start: 20210721
  9. VITAMIN K [Concomitant]
     Active Substance: PHYTONADIONE
     Indication: Product used for unknown indication
     Dosage: 5 MILLIGRAM, QD
     Route: 042
     Dates: start: 20190811, end: 20211215
  10. VITAMIN K [Concomitant]
     Active Substance: PHYTONADIONE
     Dosage: 10 MILLIGRAM, 3/WEEK
     Route: 042
     Dates: start: 20211215
  11. LEVOTHYROXINE [Concomitant]
     Active Substance: LEVOTHYROXINE
     Indication: Hormone therapy
     Dosage: 31.25 MICROGRAM, QD
     Route: 048
     Dates: start: 20190717, end: 20211104
  12. BEMIPARIN SODIUM [Concomitant]
     Active Substance: BEMIPARIN SODIUM
     Indication: Antithrombin III deficiency
     Dosage: 1500 INTERNATIONAL UNIT, QD
     Route: 058
     Dates: start: 20200305
  13. URSODIOL [Concomitant]
     Active Substance: URSODIOL
     Indication: Liver disorder
     Dosage: 30 MILLIGRAM, TID
     Route: 048
     Dates: start: 20190110, end: 20200924
  14. VITAMIN D [Concomitant]
     Active Substance: VITAMIN D NOS
     Indication: Vitamin D deficiency
     Dosage: 6 GTT DROPS, QD
     Route: 048
     Dates: start: 20210813, end: 20211103
  15. SODIUM BICARBONATE [Concomitant]
     Active Substance: SODIUM BICARBONATE
     Indication: Metabolic acidosis
     Dosage: 250 MILLIGRAM, TID
     Route: 048
     Dates: start: 20210807
  16. LEVOTHYROXINE [Concomitant]
     Active Substance: LEVOTHYROXINE
     Indication: Hormone therapy
     Dosage: 150 MICROGRAM, QD
     Route: 048
     Dates: start: 20211105
  17. Salvacolina [Concomitant]
     Indication: Antidiarrhoeal supportive care
     Dosage: 0.4 MILLIGRAM, TID
     Route: 048
     Dates: start: 20201207
  18. CEFOTAXIME [Concomitant]
     Active Substance: CEFOTAXIME SODIUM
     Indication: Vascular device infection
     Dosage: UNK
     Route: 042
     Dates: start: 20210718, end: 20210721
  19. TEICOPLANIN [Concomitant]
     Active Substance: TEICOPLANIN
     Indication: Vascular device infection
     Dosage: UNK
     Route: 042
     Dates: start: 20210718, end: 20210728
  20. COTRIMOXAZOLE [Concomitant]
     Active Substance: SULFAMETHOXAZOLE\TRIMETHOPRIM
     Indication: Vascular device infection
     Dosage: UNK
     Route: 048
     Dates: start: 20210725, end: 20210801

REACTIONS (1)
  - Faecaloma [Recovered/Resolved]

NARRATIVE: CASE EVENT DATE: 20220526
